FAERS Safety Report 12589137 (Version 4)
Quarter: 2019Q2

REPORT INFORMATION
  Report Type: Spontaneous
  Country: US (occurrence: US)
  Receive Date: 20160725
  Receipt Date: 20190614
  Transmission Date: 20190711
  Serious: Yes (Other)
  Sender: FDA-Public Use
  Company Number: US-JNJFOC-20160522367

PATIENT
  Sex: Female
  Weight: 53 kg

DRUGS (8)
  1. IMBRUVICA [Suspect]
     Active Substance: IBRUTINIB
     Indication: CHRONIC LYMPHOCYTIC LEUKAEMIA
     Route: 048
     Dates: start: 201602
  2. ACYCLOVIR. [Concomitant]
     Active Substance: ACYCLOVIR
  3. IVIGLOB EX [Concomitant]
     Active Substance: HUMAN IMMUNOGLOBULIN G
     Route: 042
  4. NEURONTIN [Concomitant]
     Active Substance: GABAPENTIN
  5. IMBRUVICA [Suspect]
     Active Substance: IBRUTINIB
     Indication: CHRONIC LYMPHOCYTIC LEUKAEMIA
     Route: 048
  6. LAMOTRIGINE. [Concomitant]
     Active Substance: LAMOTRIGINE
  7. LEVOTHYROXINE. [Concomitant]
     Active Substance: LEVOTHYROXINE
  8. PRAVASTATIN. [Concomitant]
     Active Substance: PRAVASTATIN

REACTIONS (17)
  - Platelet count decreased [Unknown]
  - Anxiety [Not Recovered/Not Resolved]
  - Fatigue [Recovering/Resolving]
  - Pain in extremity [Not Recovered/Not Resolved]
  - Joint swelling [Recovered/Resolved]
  - Feeling abnormal [Unknown]
  - Muscle spasms [Not Recovered/Not Resolved]
  - Heart rate decreased [Not Recovered/Not Resolved]
  - Petechiae [Not Recovered/Not Resolved]
  - Contusion [Not Recovered/Not Resolved]
  - Hypertension [Not Recovered/Not Resolved]
  - Headache [Not Recovered/Not Resolved]
  - Skin fissures [Unknown]
  - Myalgia [Not Recovered/Not Resolved]
  - Depressed mood [Not Recovered/Not Resolved]
  - Arthralgia [Recovered/Resolved]
  - Rash macular [Not Recovered/Not Resolved]

NARRATIVE: CASE EVENT DATE: 2016
